FAERS Safety Report 10054829 (Version 2)
Quarter: 2014Q2

REPORT INFORMATION
  Report Type: Spontaneous
  Country: US (occurrence: US)
  Receive Date: 20140402
  Receipt Date: 20140616
  Transmission Date: 20141212
  Serious: Yes (Other)
  Sender: FDA-Public Use
  Company Number: US-AMGEN-USASP2014022370

PATIENT
  Age: 58 Year
  Sex: Male

DRUGS (3)
  1. ENBREL [Suspect]
     Indication: RHEUMATOID ARTHRITIS
     Dosage: 50 MG, QWK
     Route: 065
     Dates: start: 20130101, end: 201403
  2. METHOTREXATE [Concomitant]
     Dosage: 6  2.5MG TABLETS WEEKLY
     Dates: start: 2012
  3. PREDNISONE [Concomitant]
     Dosage: 2.5 MG, UNK

REACTIONS (2)
  - Rheumatoid arthritis [Not Recovered/Not Resolved]
  - Respiratory tract infection viral [Not Recovered/Not Resolved]
